FAERS Safety Report 10009709 (Version 1)
Quarter: 2014Q1

REPORT INFORMATION
  Report Type: Spontaneous
  Country: US (occurrence: US)
  Receive Date: 20140312
  Receipt Date: 20140312
  Transmission Date: 20141002
  Serious: No
  Sender: FDA-Public Use
  Company Number: US-INCYTE CORPORATION-2012IN002356

PATIENT
  Sex: Male

DRUGS (3)
  1. JAKAFI [Suspect]
     Indication: MYELOFIBROSIS
     Dosage: 20 MG, BID
     Route: 048
     Dates: start: 20120611
  2. VITAMINS [Concomitant]
  3. HYDREA [Concomitant]
     Dosage: 500 MG, BID

REACTIONS (2)
  - White blood cell count increased [Unknown]
  - Haemoglobin decreased [Unknown]
